FAERS Safety Report 10597427 (Version 2)
Quarter: 2014Q4

REPORT INFORMATION
  Report Type: Report from Study
  Country: CA (occurrence: CA)
  Receive Date: 20141121
  Receipt Date: 20141203
  Transmission Date: 20150529
  Serious: Yes (Death, Hospitalization, Other)
  Sender: FDA-Public Use
  Company Number: CA-AMGEN-CANSL2014089112

PATIENT
  Age: 96 Year
  Sex: Female

DRUGS (13)
  1. ROCALTROL [Concomitant]
     Active Substance: CALCITRIOL
     Dosage: 0.5 MG, QD FOR 100 DAYS
     Route: 048
     Dates: end: 20140227
  2. APO-DOCUSATE SODIUM [Concomitant]
     Dosage: 100 MG, BID FOR 1 DAY
     Dates: start: 20120112, end: 20120112
  3. RABEPRAZOLE EC [Concomitant]
     Active Substance: RABEPRAZOLE
     Dosage: 20 MG, QD FOR 100 DAYS
     Route: 048
     Dates: start: 20120112, end: 20140106
  4. AVAPRO [Concomitant]
     Active Substance: IRBESARTAN
     Dosage: 150 MG, QD FOR 52 WEEKS
     Route: 048
     Dates: start: 20110614, end: 20130913
  5. CITALOPRAM [Concomitant]
     Active Substance: CITALOPRAM HYDROBROMIDE
     Dosage: 20 MG, QD 52 WEEKS
     Route: 048
     Dates: start: 20110614, end: 20130913
  6. ZOPICLONE [Concomitant]
     Active Substance: ZOPICLONE
     Dosage: 5 MG, QD 30 DAYS
     Route: 048
     Dates: start: 20120112, end: 20130906
  7. PROLIA [Suspect]
     Active Substance: DENOSUMAB
     Dosage: UNK
     Route: 058
  8. HYDROCORTISONE. [Concomitant]
     Active Substance: HYDROCORTISONE
     Indication: INFECTION
     Dosage: 0.1 %, BID
     Route: 061
     Dates: start: 20110705, end: 20140731
  9. SYNTHROID [Concomitant]
     Active Substance: LEVOTHYROXINE SODIUM
     Dosage: 0.1 MG (100 MCG), QD FOR 12 MONTHS
     Route: 048
     Dates: end: 20140714
  10. AMLODIPINE [Concomitant]
     Active Substance: AMLODIPINE BESYLATE
     Dosage: 5 MG, QD 52 WEELS
     Route: 048
     Dates: start: 20110614, end: 20130913
  11. PROLIA [Suspect]
     Active Substance: DENOSUMAB
     Indication: OSTEOPOROSIS
     Dosage: 60 MG, Q6MO
     Route: 058
     Dates: start: 20120904
  12. BETAMETHASONE VALERATE. [Concomitant]
     Active Substance: BETAMETHASONE VALERATE
     Indication: PRURITUS
     Dosage: 0.1 %, BID
     Route: 061
     Dates: start: 20140815
  13. CANESTEN [Concomitant]
     Active Substance: CLOTRIMAZOLE
     Dosage: 1 %, TID PRN
     Dates: start: 20140721

REACTIONS (2)
  - Thrombosis [Unknown]
  - Peripheral ischaemia [Fatal]

NARRATIVE: CASE EVENT DATE: 201408
